FAERS Safety Report 7465488-0 (Version None)
Quarter: 2011Q2

REPORT INFORMATION
  Report Type: 
  Country: None (occurrence: None)
  Receive Date: 20110509
  Receipt Date: 20101027
  Transmission Date: 20111010
  Serious: No
  Sender: FDA-Public Use
  Company Number: US-SANOFI-AVENTIS-2010SA066080

PATIENT
  Sex: Female
  Weight: 88 kg

DRUGS (9)
  1. LANTUS [Suspect]
     Indication: DIABETES MELLITUS
     Dates: start: 20090101
  2. LISINOPRIL [Concomitant]
     Route: 065
  3. INSULIN DETEMIR [Concomitant]
     Route: 065
  4. BONINE [Concomitant]
     Indication: MOTION SICKNESS
     Route: 048
  5. APIDRA [Suspect]
     Indication: DIABETES MELLITUS
     Dosage: DOSE:30 UNIT(S)
     Route: 058
     Dates: start: 20090101
  6. HYDROCHLOROTHIAZIDE [Concomitant]
     Route: 065
  7. ROSUVASTATIN CALCIUM [Concomitant]
     Route: 065
  8. ALL OTHER THERAPEUTIC PRODUCTS [Concomitant]
     Route: 065
     Dates: start: 20100901
  9. PLAVIX [Concomitant]
     Route: 065

REACTIONS (5)
  - DRUG INEFFECTIVE [None]
  - PAIN [None]
  - FATIGUE [None]
  - BLOOD GLUCOSE INCREASED [None]
  - PRODUCT QUALITY ISSUE [None]
